FAERS Safety Report 5157487-9 (Version None)
Quarter: 2006Q4

REPORT INFORMATION
  Report Type: 
  Country: None (occurrence: None)
  Receive Date: 20061127
  Receipt Date: 20061122
  Transmission Date: 20070319
  Serious: Yes (Other)
  Sender: FDA-Public Use
  Company Number: CA-GLAXOSMITHKLINE-A0628511A

PATIENT

DRUGS (1)
  1. AVANDIA [Suspect]

REACTIONS (1)
  - HAEMOLYTIC ANAEMIA [None]
